FAERS Safety Report 8464855-6 (Version None)
Quarter: 2012Q2

REPORT INFORMATION
  Report Type: 
  Country: None (occurrence: None)
  Receive Date: 20120626
  Receipt Date: 20120615
  Transmission Date: 20120825
  Serious: Yes (Other)
  Sender: FDA-Public Use
  Company Number: MX-SANOFI-AVENTIS-2012SA042989

PATIENT
  Age: 71 Year
  Sex: Female
  Weight: 48 kg

DRUGS (5)
  1. ASPIRIN [Concomitant]
     Route: 048
     Dates: start: 20090101
  2. OMEPRAZOLE [Concomitant]
     Route: 048
  3. LANTUS [Suspect]
     Dosage: 13 IU IN MORNING AND 7 IU AT NIGHT
     Route: 058
     Dates: start: 20100101
  4. GLYBURIDE [Concomitant]
     Indication: TYPE 2 DIABETES MELLITUS
     Dosage: 1 AND HALF IN THE MORNING, 1 TABLET IN THE AFTERNOON AND 1AND HALF TABLET AT NIGHT
     Dates: end: 20100101
  5. METFORMIN HCL [Concomitant]
     Indication: TYPE 2 DIABETES MELLITUS
     Route: 048
     Dates: end: 20100101

REACTIONS (3)
  - DEMENTIA ALZHEIMER'S TYPE [None]
  - HYPERGLYCAEMIA [None]
  - DRUG ADMINISTRATION ERROR [None]
